FAERS Safety Report 9842927 (Version 1)
Quarter: 2014Q1

REPORT INFORMATION
  Report Type: Spontaneous
  Country: CA (occurrence: CA)
  Receive Date: 20140124
  Receipt Date: 20140124
  Transmission Date: 20141002
  Serious: Yes (Hospitalization)
  Sender: FDA-Public Use
  Company Number: CA-GLAXOSMITHKLINE-A1037546A

PATIENT
  Age: 57 Year
  Sex: Female
  Weight: 62 kg

DRUGS (2)
  1. BENLYSTA [Suspect]
     Indication: SYSTEMIC LUPUS ERYTHEMATOSUS
     Dosage: 640MG SEE DOSAGE TEXT
     Route: 042
     Dates: start: 20130723, end: 20140122
  2. ANTIBIOTIC [Suspect]
     Indication: MOUTH ULCERATION
     Route: 065
     Dates: start: 201311

REACTIONS (7)
  - Nausea [Recovered/Resolved]
  - Dizziness [Recovered/Resolved]
  - Spinal cord infection [Unknown]
  - Myelitis [Unknown]
  - Hypoaesthesia [Unknown]
  - Mouth ulceration [Unknown]
  - Vaginal ulceration [Unknown]
